FAERS Safety Report 5531979-2 (Version None)
Quarter: 2007Q4

REPORT INFORMATION
  Report Type: 
  Country: None (occurrence: None)
  Receive Date: 20071128
  Receipt Date: 20071128
  Transmission Date: 20080405
  Serious: Yes (Hospitalization)
  Sender: FDA-Public Use
  Company Number: None

PATIENT
  Age: 68 Year
  Sex: Male

DRUGS (1)
  1. LISINOPRIL [Suspect]
     Indication: HYPERTENSION
     Dosage: 10MG  EVERY DAY  PO
     Route: 048
     Dates: start: 20070815, end: 20071024

REACTIONS (2)
  - ANGIOEDEMA [None]
  - ODYNOPHAGIA [None]
